FAERS Safety Report 15294102 (Version 2)
Quarter: 2018Q4

REPORT INFORMATION
  Report Type: Spontaneous
  Country: US (occurrence: US)
  Receive Date: 20180820
  Receipt Date: 20180829
  Transmission Date: 20190204
  Serious: Yes (Hospitalization, Other)
  Sender: FDA-Public Use
  Company Number: US-AUROBINDO-AUR-APL-2018-041932

PATIENT
  Age: 83 Year
  Sex: Male

DRUGS (11)
  1. FOLINIC ACID [Suspect]
     Active Substance: LEUCOVORIN
     Dosage: 10 CYCLES
     Route: 065
  2. FLUOROURACIL. [Suspect]
     Active Substance: FLUOROURACIL
     Dosage: 10 CYCLES
     Route: 065
  3. DEXAMETHASONE. [Suspect]
     Active Substance: DEXAMETHASONE
     Indication: PRODUCT USED FOR UNKNOWN INDICATION
     Dosage: UNK
     Route: 065
  4. OXALIPLATIN. [Suspect]
     Active Substance: OXALIPLATIN
     Dosage: 10 CYCLES
     Route: 065
  5. CAPECITABINE. [Suspect]
     Active Substance: CAPECITABINE
     Indication: METASTASIS
     Dosage: UNK
     Route: 065
  6. FOLINIC ACID [Suspect]
     Active Substance: LEUCOVORIN
     Indication: RECTAL CANCER STAGE IV
     Dosage: 8 CYCLE
     Route: 065
  7. OXALIPLATIN. [Suspect]
     Active Substance: OXALIPLATIN
     Indication: RECTAL CANCER STAGE IV
     Dosage: 8 CYCLES
     Route: 065
  8. FLUOROURACIL. [Suspect]
     Active Substance: FLUOROURACIL
     Indication: RECTAL CANCER STAGE IV
     Dosage: 8 CYCLES
     Route: 065
  9. BEVACIZUMAB. [Suspect]
     Active Substance: BEVACIZUMAB
     Indication: RECTAL CANCER STAGE IV
     Dosage: 8 CYCLES
     Route: 065
  10. BEVACIZUMAB. [Suspect]
     Active Substance: BEVACIZUMAB
     Dosage: 10 CYCLES
     Route: 065
  11. PALONOSETRON. [Suspect]
     Active Substance: PALONOSETRON HYDROCHLORIDE
     Indication: PRODUCT USED FOR UNKNOWN INDICATION
     Route: 065

REACTIONS (19)
  - Thrombocytopenia [Unknown]
  - Blood creatinine increased [Unknown]
  - Neutropenia [Recovered/Resolved]
  - Normochromic normocytic anaemia [Unknown]
  - Thrombotic microangiopathy [Unknown]
  - Acute kidney injury [Unknown]
  - Nasopharyngitis [Recovered/Resolved]
  - Blood lactate dehydrogenase increased [Unknown]
  - Leukocytosis [Unknown]
  - Hypertension [Unknown]
  - Metastasis [Unknown]
  - Microangiopathic haemolytic anaemia [Unknown]
  - Back pain [Unknown]
  - Chest discomfort [Recovered/Resolved]
  - Chills [Unknown]
  - Immune thrombocytopenic purpura [Unknown]
  - Cytopenia [Unknown]
  - Intravascular haemolysis [Unknown]
  - Anaemia [Unknown]
